FAERS Safety Report 4726887-0 (Version None)
Quarter: 2005Q3

REPORT INFORMATION
  Report Type: 
  Country: None (occurrence: None)
  Receive Date: 20050725
  Receipt Date: 20050725
  Transmission Date: 20060218
  Serious: Yes (Hospitalization)
  Sender: FDA-Public Use
  Company Number: None

PATIENT
  Age: 57 Year
  Weight: 103.4201 kg

DRUGS (17)
  1. QUETIAPINE 200MG [Suspect]
     Indication: SCHIZOPHRENIA
     Dosage: 200MG QHS ORAL
     Route: 048
     Dates: start: 20021001, end: 20050502
  2. ENALAPRIL [Concomitant]
  3. SIMVASTATIN [Concomitant]
  4. HYDROCHLOROTHIAZIDE [Concomitant]
  5. RANITIDINE [Concomitant]
  6. TRAZADONE [Concomitant]
  7. TRAVOPROST [Concomitant]
  8. DORZOLAMIDE/TIMOLOL [Concomitant]
  9. MECLIZINE [Concomitant]
  10. AZITHROMYCIN [Concomitant]
  11. FELODIPINE [Concomitant]
  12. CITALOPRAM [Concomitant]
  13. QUETIAPINE FUMARATE [Concomitant]
  14. GUAIFENESIN/CODEINE [Concomitant]
  15. FLOVENT [Concomitant]
  16. TYLENOL (CAPLET) [Concomitant]
  17. TRAMADOL HCL [Concomitant]

REACTIONS (5)
  - BLOOD GLUCOSE INCREASED [None]
  - DIZZINESS [None]
  - GLYCOSYLATED HAEMOGLOBIN INCREASED [None]
  - POLYDIPSIA [None]
  - POLYURIA [None]
